FAERS Safety Report 6679758-7 (Version None)
Quarter: 2010Q2

REPORT INFORMATION
  Report Type: 
  Country: None (occurrence: None)
  Receive Date: 20100413
  Receipt Date: 20100108
  Transmission Date: 20101027
  Serious: No
  Sender: FDA-Public Use
  Company Number: US-ASTRAZENECA-2009SE27133

PATIENT
  Sex: Female

DRUGS (2)
  1. TENORMIN [Suspect]
     Indication: PALPITATIONS
     Route: 048
     Dates: end: 20041102
  2. SYNTHROID [Concomitant]

REACTIONS (3)
  - ASTHENIA [None]
  - HEART RATE IRREGULAR [None]
  - MOBILITY DECREASED [None]
